FAERS Safety Report 17069111 (Version 3)
Quarter: 2019Q4

REPORT INFORMATION
  Report Type: Report from Study
  Country: None (occurrence: NL)
  Receive Date: 20191124
  Receipt Date: 20191203
  Transmission Date: 20200122
  Serious: Yes (Hospitalization, Other)
  Sender: FDA-Public Use
  Company Number: NL-ABBVIE-16P-114-1794093-00

PATIENT
  Sex: Male

DRUGS (9)
  1. DUODOPA [Suspect]
     Active Substance: CARBIDOPA\LEVODOPA
     Dosage: DAY PUMP: MD 10 D 8.2 ED 3.0 NIGHT PUMP: CD 7.8 ED 3.0
     Route: 050
  2. RIVOTRIL [Concomitant]
     Active Substance: CLONAZEPAM
     Indication: PRODUCT USED FOR UNKNOWN INDICATION
  3. DUODOPA [Suspect]
     Active Substance: CARBIDOPA\LEVODOPA
     Dosage: NIGHT PUMP: CD 7.8 ML MD: 10 ED 3.0 ED 3.0 CD 8.2 ED 2.0
     Route: 050
  4. LEVODOPA C COMP [Concomitant]
     Indication: PRODUCT USED FOR UNKNOWN INDICATION
  5. DUODOPA [Suspect]
     Active Substance: CARBIDOPA\LEVODOPA
     Dosage: MORNING DOSE: 10, CONTINUOUS DOSE: 8, EXTRA DOSE: 3, NIGHT DOSE: 6.8
     Route: 050
  6. LEVODOPA-CARBIDOPA [Concomitant]
     Active Substance: CARBIDOPA\LEVODOPA
     Indication: PRODUCT USED FOR UNKNOWN INDICATION
  7. DUODOPA [Suspect]
     Active Substance: CARBIDOPA\LEVODOPA
     Indication: PARKINSON^S DISEASE
     Dosage: MORNING DOSE: 10.0 CONTINUOUS DOSE: 6.3 EXTRA DOSE: 3.0 -1.5 NIGHT DOSE: 4.4
     Route: 050
     Dates: start: 20151103
  8. DUODOPA [Suspect]
     Active Substance: CARBIDOPA\LEVODOPA
     Dosage: ED 3.0 CD 7.6 ND 7.0 END 3.0
     Route: 050
  9. CLOZAPINE. [Concomitant]
     Active Substance: CLOZAPINE
     Indication: PRODUCT USED FOR UNKNOWN INDICATION
     Dosage: DAY PUMP MD 10.0 CD 8.2 ED 3.0 NIGHT PUMP MD 10 CD 7.8 ED 3.0

REACTIONS (44)
  - Confusional state [Not Recovered/Not Resolved]
  - Frequent bowel movements [Unknown]
  - Stoma site odour [Not Recovered/Not Resolved]
  - Anxiety [Unknown]
  - Cognitive disorder [Unknown]
  - Movement disorder [Not Recovered/Not Resolved]
  - Memory impairment [Not Recovered/Not Resolved]
  - Burning sensation [Not Recovered/Not Resolved]
  - Incontinence [Not Recovered/Not Resolved]
  - Stoma site inflammation [Not Recovered/Not Resolved]
  - General physical health deterioration [Not Recovered/Not Resolved]
  - Weight increased [Recovered/Resolved]
  - Nocturia [Not Recovered/Not Resolved]
  - Mental impairment [Not Recovered/Not Resolved]
  - Neuralgia [Not Recovered/Not Resolved]
  - Food aversion [Recovering/Resolving]
  - Abnormal dreams [Not Recovered/Not Resolved]
  - Unevaluable event [Not Recovered/Not Resolved]
  - Oedema peripheral [Not Recovered/Not Resolved]
  - Fatigue [Unknown]
  - Therapeutic product effect variable [Not Recovered/Not Resolved]
  - Poor quality sleep [Not Recovered/Not Resolved]
  - Gastrointestinal disorder [Not Recovered/Not Resolved]
  - Fall [Recovered/Resolved]
  - Dementia [Not Recovered/Not Resolved]
  - Polyneuropathy [Not Recovered/Not Resolved]
  - Drug ineffective [Not Recovered/Not Resolved]
  - Hallucination [Not Recovered/Not Resolved]
  - Fear [Not Recovered/Not Resolved]
  - Fibroma [Recovered/Resolved]
  - Salivary hypersecretion [Not Recovered/Not Resolved]
  - On and off phenomenon [Not Recovered/Not Resolved]
  - Stoma site discharge [Recovered/Resolved]
  - Stoma site reaction [Not Recovered/Not Resolved]
  - Middle insomnia [Not Recovered/Not Resolved]
  - Stoma site discharge [Not Recovered/Not Resolved]
  - Gait disturbance [Not Recovered/Not Resolved]
  - Sexual inhibition [Not Recovered/Not Resolved]
  - Memory impairment [Unknown]
  - Mental disorder [Unknown]
  - Weight decreased [Not Recovered/Not Resolved]
  - Dyskinesia [Not Recovered/Not Resolved]
  - Freezing phenomenon [Not Recovered/Not Resolved]
  - Stoma site inflammation [Recovered/Resolved]

NARRATIVE: CASE EVENT DATE: 2019
